FAERS Safety Report 9668335 (Version 2)
Quarter: 2013Q4

REPORT INFORMATION
  Report Type: Spontaneous
  Country: US (occurrence: US)
  Receive Date: 20131104
  Receipt Date: 20131223
  Transmission Date: 20140711
  Serious: Yes (Death, Other)
  Sender: FDA-Public Use
  Company Number: US-GILEAD-2013-0086839

PATIENT
  Age: 72 Year
  Sex: Female

DRUGS (2)
  1. CAYSTON [Suspect]
     Indication: PNEUMONIA PSEUDOMONAL
     Dosage: 75 MG, UNK
     Route: 055
     Dates: start: 20131007
  2. VANCO [Concomitant]
     Indication: PNEUMONIA PSEUDOMONAL
     Dosage: UNK
     Dates: start: 2013

REACTIONS (2)
  - Acute respiratory failure [Fatal]
  - Septic shock [Fatal]
